FAERS Safety Report 16400802 (Version 1)
Quarter: 2019Q2

REPORT INFORMATION
  Report Type: Spontaneous
  Country: US (occurrence: US)
  Receive Date: 20190606
  Receipt Date: 20190606
  Transmission Date: 20190711
  Serious: Yes (Life-Threatening, Hospitalization)
  Sender: FDA-Public Use
  Company Number: US-TEVA-2019-US-1059282

PATIENT
  Age: 17 Year
  Sex: Male

DRUGS (5)
  1. ALPRAZOLAM. [Suspect]
     Active Substance: ALPRAZOLAM
     Indication: DRUG ABUSE
     Dosage: AS ^WHITE CHINA^, WITH DIAMORPHINE [HEROIN] AND FENTANYL
     Route: 065
  2. MARIJUANA [Concomitant]
     Active Substance: CANNABIS SATIVA SUBSP. INDICA TOP
     Indication: STRESS
     Route: 065
  3. TRAMADOL. [Suspect]
     Active Substance: TRAMADOL
     Indication: PRODUCT USED FOR UNKNOWN INDICATION
     Route: 065
  4. FENTANYL. [Suspect]
     Active Substance: FENTANYL
     Indication: DRUG ABUSE
     Dosage: AS ^WHITE CHINA^, WITH DIAMORPHINE [HEROIN] AND ALPRAZOLAM
     Route: 065
  5. HEROIN [Suspect]
     Active Substance: DIAMORPHINE
     Route: 065

REACTIONS (6)
  - Leukoencephalopathy [Recovering/Resolving]
  - Multiple organ dysfunction syndrome [Unknown]
  - Hypotension [Unknown]
  - Toxicity to various agents [Unknown]
  - Cardiogenic shock [Unknown]
  - Drug abuse [Unknown]
